FAERS Safety Report 6999495-9 (Version None)
Quarter: 2010Q3

REPORT INFORMATION
  Report Type: 
  Country: None (occurrence: None)
  Receive Date: 20100920
  Receipt Date: 20070523
  Transmission Date: 20110219
  Serious: Yes (Other)
  Sender: FDA-Public Use
  Company Number: US-ASTRAZENECA-2006UW07977

PATIENT
  Age: 36 Year
  Sex: Male
  Weight: 122 kg

DRUGS (14)
  1. SEROQUEL [Suspect]
     Indication: MENTAL DISORDER
     Dosage: 100-600MG
     Route: 048
     Dates: start: 20011025
  2. SEROQUEL [Suspect]
     Indication: HALLUCINATION, AUDITORY
     Dosage: 100-600MG
     Route: 048
     Dates: start: 20011025
  3. SEROQUEL [Suspect]
     Route: 048
     Dates: start: 20020701, end: 20020705
  4. SEROQUEL [Suspect]
     Route: 048
     Dates: start: 20020701, end: 20020705
  5. SEROQUEL [Suspect]
     Route: 048
     Dates: start: 20050501, end: 20060501
  6. SEROQUEL [Suspect]
     Route: 048
     Dates: start: 20050501, end: 20060501
  7. ABILIFY [Concomitant]
  8. NAVANE [Concomitant]
     Dates: start: 20040101
  9. RISPERDAL [Concomitant]
     Dates: start: 19950101
  10. ZYPREXA [Concomitant]
     Dosage: 10-20 MG
     Dates: start: 19970101, end: 20040101
  11. LIPITOR [Concomitant]
     Route: 048
     Dates: start: 20031008
  12. LISINOPRIL [Concomitant]
     Route: 048
     Dates: start: 20051207
  13. PAXIL [Concomitant]
     Indication: DEPRESSION
     Dates: start: 20020705
  14. LEVOTHYROXINE SODIUM [Concomitant]
     Indication: THYROID DISORDER
     Dates: start: 20020705

REACTIONS (3)
  - DIABETES MELLITUS [None]
  - KETOACIDOSIS [None]
  - PANCREATITIS [None]
